FAERS Safety Report 6694086-1 (Version None)
Quarter: 2010Q2

REPORT INFORMATION
  Report Type: 
  Country: None (occurrence: None)
  Receive Date: 20100423
  Receipt Date: 20100419
  Transmission Date: 20101027
  Serious: Yes (Other)
  Sender: FDA-Public Use
  Company Number: ES-ASTRAZENECA-2010SE17623

PATIENT
  Age: 57 Year
  Sex: Female

DRUGS (3)
  1. SEROQUEL XR [Suspect]
     Indication: MAJOR DEPRESSION
     Route: 048
     Dates: start: 20050101, end: 20100101
  2. TRILEPTAL [Suspect]
     Indication: MAJOR DEPRESSION
     Route: 048
     Dates: start: 20050101, end: 20100101
  3. DOBUPAL [Suspect]
     Indication: MAJOR DEPRESSION
     Route: 048
     Dates: start: 20050101, end: 20100101

REACTIONS (2)
  - BRAIN OEDEMA [None]
  - HYPONATRAEMIA [None]
